FAERS Safety Report 17570148 (Version 1)
Quarter: 2020Q1

REPORT INFORMATION
  Report Type: Report from Study
  Country: None (occurrence: RO)
  Receive Date: 20200323
  Receipt Date: 20200323
  Transmission Date: 20200409
  Serious: Yes (Death, Other)
  Sender: FDA-Public Use
  Company Number: RO-ABBVIE-20K-135-3329865-00

PATIENT
  Age: 66 Year
  Sex: Female

DRUGS (1)
  1. HUMIRA [Suspect]
     Active Substance: ADALIMUMAB
     Indication: RHEUMATOID ARTHRITIS
     Route: 058
     Dates: start: 20170415, end: 202002

REACTIONS (12)
  - Quadriparesis [Unknown]
  - Polyarthritis [Unknown]
  - Cachexia [Unknown]
  - Cardiac failure chronic [Unknown]
  - Hypertension [Unknown]
  - Chronic kidney disease [Unknown]
  - Cerebrovascular accident [Unknown]
  - Hypertensive heart disease [Unknown]
  - Death [Fatal]
  - Cardiopulmonary failure [Unknown]
  - Urinary tract infection [Unknown]
  - Sepsis [Unknown]

NARRATIVE: CASE EVENT DATE: 20200208
